FAERS Safety Report 8549844-5 (Version None)
Quarter: 2012Q3

REPORT INFORMATION
  Report Type: 
  Country: None (occurrence: None)
  Receive Date: 20120730
  Receipt Date: 20120723
  Transmission Date: 20120928
  Serious: Yes (Life-Threatening, Other)
  Sender: FDA-Public Use
  Company Number: US-CELGENEUS-163-21880-12022747

PATIENT
  Sex: Male

DRUGS (4)
  1. VELCADE [Concomitant]
     Route: 050
     Dates: start: 20110101
  2. REVLIMID [Suspect]
     Dosage: 25 MILLIGRAM
     Route: 048
     Dates: start: 20120724
  3. REVLIMID [Suspect]
     Indication: MULTIPLE MYELOMA
     Dosage: 25 MILLIGRAM
     Route: 048
     Dates: start: 20110112
  4. CALCIUM ACETATE [Concomitant]
     Route: 065

REACTIONS (5)
  - RENAL FAILURE [None]
  - HYDROCEPHALUS [None]
  - CONVULSION [None]
  - LABORATORY TEST ABNORMAL [None]
  - DEMENTIA [None]
